FAERS Safety Report 22834602 (Version 2)
Quarter: 2023Q4

REPORT INFORMATION
  Report Type: Spontaneous
  Country: DE (occurrence: DE)
  Receive Date: 20230817
  Receipt Date: 20231026
  Transmission Date: 20240110
  Serious: Yes (Other)
  Sender: FDA-Public Use
  Company Number: DE-BIOGEN-2023BI01221763

PATIENT
  Sex: Female
  Weight: 55 kg

DRUGS (5)
  1. TYSABRI [Suspect]
     Active Substance: NATALIZUMAB
     Indication: Multiple sclerosis relapse
     Route: 050
     Dates: start: 20230614, end: 20230807
  2. BEROTEC [Concomitant]
     Active Substance: FENOTEROL HYDROBROMIDE
     Indication: Asthma
     Dosage: AS NEEDED
     Route: 050
     Dates: start: 20220812
  3. TOLPERISONE [Concomitant]
     Active Substance: TOLPERISONE
     Indication: Ventricular septal defect
     Dosage: AS NEEDED
     Route: 050
     Dates: start: 20230113
  4. PRAMIPEXOLE [Concomitant]
     Active Substance: PRAMIPEXOLE
     Indication: Restless legs syndrome
     Route: 050
     Dates: start: 20200702
  5. Elebrato Elipta [Concomitant]
     Indication: Asthma
     Dosage: DOSAGE: 92 ?G/55 ?G/22 ?G
     Route: 050
     Dates: start: 20220812

REACTIONS (7)
  - Chest pain [Unknown]
  - Asthma [Unknown]
  - Muscle spasms [Unknown]
  - Pain [Unknown]
  - Asthenia [Unknown]
  - Headache [Unknown]
  - Dizziness [Unknown]
